FAERS Safety Report 11507512 (Version 2)
Quarter: 2015Q4

REPORT INFORMATION
  Report Type: Spontaneous
  Country: BR (occurrence: BR)
  Receive Date: 20150915
  Receipt Date: 20151012
  Transmission Date: 20160304
  Serious: Yes (Other)
  Sender: FDA-Public Use
  Company Number: BR-PFIZER INC-2015305174

PATIENT
  Age: 55 Year
  Sex: Female
  Weight: 82 kg

DRUGS (7)
  1. ARISTAB [Concomitant]
     Indication: DEPRESSION
     Dosage: 1 TABLET (UNSPECIFIED DOSE), 1X/DAY (AT NIGHT)
     Dates: start: 2013
  2. CARDIZEM [Concomitant]
     Active Substance: DILTIAZEM HYDROCHLORIDE
     Indication: BLOOD PRESSURE ABNORMAL
     Dosage: 1 TABLET (UNSPECIFIED DOSE), DAILY
     Dates: start: 2010
  3. CHAMPIX [Suspect]
     Active Substance: VARENICLINE TARTRATE
     Dosage: 1 TABLET IN THE MORNING AND 1 TABLET AT NIGHT, UNSPECIFIED DOSE, 2X/DAY
     Route: 048
     Dates: start: 2013, end: 201306
  4. LUVOX [Concomitant]
     Active Substance: FLUVOXAMINE MALEATE
     Indication: DEPRESSION
     Dosage: 1 TABLET (UNSPECIFIED DOSE), 2X/DAY (IN THE MORNING AND AT NIGHT)
     Dates: start: 2013
  5. METFORMIN [Concomitant]
     Active Substance: METFORMIN HYDROCHLORIDE
     Indication: DIABETES MELLITUS
     Dosage: 1 TABLET (UNSPECIFIED DOSE), DAILY
     Dates: start: 2010
  6. SUSTRATE [Concomitant]
     Active Substance: PROPATYL NITRATE
     Dosage: 1 TABLET (UNSPECIFIED DOSE), DAILY
     Dates: start: 2010
  7. CHAMPIX [Suspect]
     Active Substance: VARENICLINE TARTRATE
     Indication: SMOKING CESSATION THERAPY
     Dosage: 1 TABLET (UNSPECIFIED DOSE), 1X/DAY (IN THE MORNING)
     Route: 048
     Dates: start: 201305, end: 201305

REACTIONS (1)
  - Chronic obstructive pulmonary disease [Unknown]

NARRATIVE: CASE EVENT DATE: 2015
